FAERS Safety Report 7776142-X (Version None)
Quarter: 2011Q3

REPORT INFORMATION
  Report Type: 
  Country: None (occurrence: None)
  Receive Date: 20110926
  Receipt Date: 20110922
  Transmission Date: 20111222
  Serious: Yes (Hospitalization, Other)
  Sender: FDA-Public Use
  Company Number: US-BRISTOL-MYERS SQUIBB COMPANY-16087744

PATIENT
  Age: 63 Year
  Sex: Male

DRUGS (2)
  1. ERBITUX [Suspect]
     Indication: BONE NEOPLASM MALIGNANT
     Dates: start: 20110201
  2. ZOMETA [Concomitant]
     Dates: start: 20110201

REACTIONS (2)
  - BLOOD MAGNESIUM DECREASED [None]
  - MUSCULAR WEAKNESS [None]
